FAERS Safety Report 5095029-7 (Version None)
Quarter: 2006Q3

REPORT INFORMATION
  Report Type: 
  Country: None (occurrence: None)
  Receive Date: 20060901
  Receipt Date: 20060810
  Transmission Date: 20061208
  Serious: Yes (Hospitalization)
  Sender: FDA-Public Use
  Company Number: FR-BRISTOL-MYERS SQUIBB COMPANY-13471909

PATIENT
  Age: 70 Year
  Sex: Male

DRUGS (12)
  1. APROVEL FILM-COATED TABS [Suspect]
     Route: 048
  2. BISOPROLOL FUMARATE [Suspect]
     Dates: start: 20060701
  3. ESIDRIX [Suspect]
     Dates: start: 20060701
  4. LOZOL [Suspect]
     Dates: end: 20060630
  5. SUCRALFATE [Concomitant]
  6. CALCIDOSE [Concomitant]
  7. CORTANCYL [Concomitant]
  8. SOLUPRED [Concomitant]
  9. VASTEN [Concomitant]
  10. GLUCOPHAGE [Concomitant]
  11. FLODIL [Concomitant]
  12. WINE [Concomitant]

REACTIONS (1)
  - THROMBOCYTOPENIA [None]
